FAERS Safety Report 10056618 (Version 2)
Quarter: 2014Q2

REPORT INFORMATION
  Report Type: Report from Study
  Country: US (occurrence: US)
  Receive Date: 20140403
  Receipt Date: 20140421
  Transmission Date: 20141212
  Serious: Yes (Death, Hospitalization)
  Sender: FDA-Public Use
  Company Number: US-ACTELION-A-US2014-96674

PATIENT
  Age: 86 Year
  Sex: Male

DRUGS (2)
  1. TRACLEER [Suspect]
     Indication: PULMONARY HYPERTENSION
     Dosage: UNK
     Route: 048
     Dates: start: 20101105, end: 20140318
  2. TYVASO [Concomitant]

REACTIONS (4)
  - Acute respiratory failure [Fatal]
  - Pulmonary arterial hypertension [Fatal]
  - Gastrointestinal haemorrhage [Unknown]
  - Syncope [Unknown]
